FAERS Safety Report 20897977 (Version 2)
Quarter: 2022Q2

REPORT INFORMATION
  Report Type: Spontaneous
  Country: CH (occurrence: None)
  Receive Date: 20220531
  Receipt Date: 20220628
  Transmission Date: 20220721
  Serious: Yes (Life-Threatening, Other)
  Sender: FDA-Public Use
  Company Number: CH-ROCHE-3104623

PATIENT
  Age: 76 Year
  Sex: Female
  Weight: 70.5 kg

DRUGS (9)
  1. MABTHERA [Suspect]
     Active Substance: RITUXIMAB
     Indication: Waldenstrom^s macroglobulinaemia
     Dosage: PATIENT SUBSEQUENTLY TOOK THE DRUGS ON:  24/JUL/2017, 31/JUL/2017, 07/AUG/2017
     Route: 041
     Dates: start: 20170717
  2. MABTHERA [Suspect]
     Active Substance: RITUXIMAB
     Indication: Anti-myelin-associated glycoprotein associated polyneuropathy
  3. RITUXIMAB [Suspect]
     Active Substance: RITUXIMAB
     Indication: Anti-myelin-associated glycoprotein associated polyneuropathy
     Dosage: ONGOING
     Route: 042
     Dates: start: 20190516, end: 20190516
  4. RITUXIMAB [Suspect]
     Active Substance: RITUXIMAB
     Indication: Waldenstrom^s macroglobulinaemia
  5. ASPIRIN [Concomitant]
     Active Substance: ASPIRIN
  6. MYSOLINE [Concomitant]
     Active Substance: PRIMIDONE
  7. SOLU-MEDROL [Concomitant]
     Active Substance: METHYLPREDNISOLONE SODIUM SUCCINATE
     Route: 042
     Dates: start: 20190516
  8. CLEMASTINE FUMARATE [Concomitant]
     Active Substance: CLEMASTINE FUMARATE
     Route: 042
     Dates: start: 20220617
  9. DAFALGAN [Concomitant]
     Active Substance: ACETAMINOPHEN
     Route: 048
     Dates: start: 20220617

REACTIONS (2)
  - Anaphylactic reaction [Recovered/Resolved]
  - Bronchospasm [Unknown]

NARRATIVE: CASE EVENT DATE: 20170717
